FAERS Safety Report 7731897-5 (Version None)
Quarter: 2011Q3

REPORT INFORMATION
  Report Type: 
  Country: None (occurrence: None)
  Receive Date: 20110906
  Receipt Date: 20110830
  Transmission Date: 20111222
  Serious: Yes (Hospitalization)
  Sender: FDA-Public Use
  Company Number: CH-PFIZER INC-2011201746

PATIENT
  Age: 72 Year
  Sex: Female
  Weight: 69 kg

DRUGS (11)
  1. ASPIRIN [Concomitant]
     Dosage: 100 MG, 1X/DAY
     Route: 048
  2. ELTROXIN LF [Concomitant]
     Dosage: 0.15 MG, 1X/DAY
     Route: 048
  3. ZESTRIL [Concomitant]
     Dosage: 5 MG, 1X/DAY
     Route: 048
  4. ZANTAC [Concomitant]
     Dosage: 150 MG, 1X/DAY
     Route: 048
  5. NORVASC [Concomitant]
     Dosage: 5 MG, 1X/DAY
     Route: 048
  6. CORDARONE [Concomitant]
     Dosage: 200 MG, 1X/DAY
     Route: 048
  7. ZOLPIDEM TARTRATE [Concomitant]
     Dosage: 10 MG, 1X/DAY
     Route: 048
  8. VFEND [Suspect]
     Dosage: 400 MG, 2X/DAY
     Route: 048
     Dates: start: 20110504, end: 20110729
  9. POTASSIUM CHLORIDE [Concomitant]
     Dosage: 8 MMOL, 1X/DAY
     Route: 048
  10. SYMBICORT [Concomitant]
     Dosage: UNK
     Route: 055
  11. TORASEMIDE [Concomitant]
     Dosage: 15 MG, 1X/DAY
     Route: 048

REACTIONS (6)
  - GAMMA-GLUTAMYLTRANSFERASE INCREASED [None]
  - ASPARTATE AMINOTRANSFERASE INCREASED [None]
  - BLOOD BILIRUBIN INCREASED [None]
  - ALANINE AMINOTRANSFERASE INCREASED [None]
  - BLOOD ALKALINE PHOSPHATASE INCREASED [None]
  - C-REACTIVE PROTEIN INCREASED [None]
